FAERS Safety Report 24691699 (Version 1)
Quarter: 2024Q4

REPORT INFORMATION
  Report Type: Spontaneous
  Country: GB (occurrence: GB)
  Receive Date: 20241203
  Receipt Date: 20241203
  Transmission Date: 20250114
  Serious: Yes (Other)
  Sender: DR REDDYS
  Company Number: None

PATIENT
  Age: 59 Year
  Sex: Female
  Weight: 62 kg

DRUGS (4)
  1. MONTELUKAST [Suspect]
     Active Substance: MONTELUKAST
     Indication: Asthma
     Dosage: 10MG ONCE AT NIGHT
     Dates: start: 20241125, end: 20241126
  2. OXTRIPHYLLINE [Concomitant]
     Active Substance: OXTRIPHYLLINE
     Indication: Pneumonia bacterial
     Dates: start: 20241125
  3. SYMBICORT [Concomitant]
     Active Substance: BUDESONIDE\FORMOTEROL FUMARATE DIHYDRATE
     Indication: Asthma
     Dates: start: 20241125
  4. ZINACEF [Concomitant]
     Active Substance: CEFUROXIME SODIUM
     Indication: Pneumonia bacterial
     Dates: start: 20241125

REACTIONS (3)
  - Muscular weakness [Recovering/Resolving]
  - Tachyphrenia [Recovered/Resolved]
  - Agitation [Recovered/Resolved]

NARRATIVE: CASE EVENT DATE: 20241125
